FAERS Safety Report 21100000 (Version 5)
Quarter: 2022Q4

REPORT INFORMATION
  Report Type: Report from Study
  Country: US (occurrence: US)
  Receive Date: 20220719
  Receipt Date: 20221210
  Transmission Date: 20230113
  Serious: Yes (Other)
  Sender: FDA-Public Use
  Company Number: US-NOVARTISPH-NVSC2022US159598

PATIENT
  Sex: Female

DRUGS (4)
  1. ENTRESTO [Suspect]
     Active Substance: SACUBITRIL\VALSARTAN
     Indication: Product used for unknown indication
     Dosage: 1 DOSAGE FORM (24/26 MG), BID
     Route: 048
  2. ENTRESTO [Suspect]
     Active Substance: SACUBITRIL\VALSARTAN
     Dosage: 1 DOSAGE FORM (24/26 MG), BID
     Route: 048
  3. LASIX [Concomitant]
     Active Substance: FUROSEMIDE
     Indication: Product used for unknown indication
     Dosage: UNK
     Route: 065
  4. LASIX [Concomitant]
     Active Substance: FUROSEMIDE
     Dosage: UNK (DOSE INCREASED)
     Route: 065

REACTIONS (15)
  - Cataract [Not Recovered/Not Resolved]
  - Pulmonary oedema [Recovering/Resolving]
  - Gastrointestinal oedema [Recovering/Resolving]
  - Dyspnoea [Not Recovered/Not Resolved]
  - Joint swelling [Recovering/Resolving]
  - Peripheral swelling [Recovering/Resolving]
  - Costochondritis [Unknown]
  - Weight decreased [Not Recovered/Not Resolved]
  - Musculoskeletal chest pain [Recovering/Resolving]
  - Arthralgia [Not Recovered/Not Resolved]
  - Urine output decreased [Unknown]
  - Vision blurred [Unknown]
  - Arthritis [Unknown]
  - Back pain [Not Recovered/Not Resolved]
  - Hypotension [Recovering/Resolving]
